FAERS Safety Report 4540944-3 (Version None)
Quarter: 2004Q4

REPORT INFORMATION
  Report Type: 
  Country: None (occurrence: None)
  Receive Date: 20041229
  Receipt Date: 20041222
  Transmission Date: 20050328
  Serious: Yes (Hospitalization)
  Sender: FDA-Public Use
  Company Number: FR-GLAXOSMITHKLINE-B0362704A

PATIENT
  Age: 49 Year
  Sex: Female

DRUGS (6)
  1. AZANTAC [Suspect]
     Dosage: 25MG PER DAY
     Route: 042
     Dates: start: 20041102, end: 20041102
  2. TAXOL [Suspect]
     Indication: OVARIAN CANCER
     Dosage: 120MG PER DAY
     Route: 042
     Dates: start: 20041102, end: 20041102
  3. PARAPLATIN [Suspect]
     Indication: OVARIAN CANCER
     Dosage: 150MG PER DAY
     Route: 042
     Dates: start: 20041102, end: 20041102
  4. KYTRIL [Suspect]
     Dosage: 3MG PER DAY
     Route: 042
     Dates: start: 20041102, end: 20041102
  5. POLARAMINE [Suspect]
     Dosage: 5MG PER DAY
     Route: 030
     Dates: start: 20041102, end: 20041102
  6. SOLU-MEDROL [Suspect]
     Dosage: 20MG PER DAY
     Route: 042
     Dates: start: 20041102, end: 20041102

REACTIONS (4)
  - ABDOMINAL PAIN [None]
  - DYSPEPSIA [None]
  - GLOSSODYNIA [None]
  - TACHYCARDIA [None]
